FAERS Safety Report 6772876 (Version 4)
Quarter: 2015Q1

REPORT INFORMATION
  Report Type: Report from Study
  Country: JP (occurrence: JP)
  Receive Date: 20080926
  Receipt Date: 20150327
  Transmission Date: 20150721
  Serious: Yes (Hospitalization, Other)
  Sender: FDA-Public Use
  Company Number: JP-PFIZER INC-2008078329

PATIENT
  Age: 60 Year
  Sex: Female
  Weight: 47 kg

DRUGS (4)
  1. SUNITINIB MALATE [Suspect]
     Active Substance: SUNITINIB MALATE
     Indication: RENAL CELL CARCINOMA
     Dosage: QD
     Route: 048
     Dates: start: 20080801, end: 20080826
  2. OMEPRAL [Concomitant]
     Active Substance: OMEPRAZOLE
     Route: 048
  3. GANATON [Concomitant]
     Active Substance: ITOPRIDE
     Route: 048
  4. THYRADIN S [Concomitant]
     Active Substance: LEVOTHYROXINE SODIUM
     Route: 048

REACTIONS (5)
  - Hypertension [Recovering/Resolving]
  - Wound dehiscence [Recovered/Resolved]
  - Ejection fraction decreased [Recovering/Resolving]
  - Hypothyroidism [Not Recovered/Not Resolved]
  - White blood cell count decreased [Recovering/Resolving]

NARRATIVE: CASE EVENT DATE: 20080802
